FAERS Safety Report 6828531-5 (Version None)
Quarter: 2010Q3

REPORT INFORMATION
  Report Type: 
  Country: None (occurrence: None)
  Receive Date: 20100708
  Receipt Date: 20100708
  Transmission Date: 20110219
  Serious: Yes (Hospitalization)
  Sender: FDA-Public Use
  Company Number: None

PATIENT
  Age: 28 Year
  Sex: Female
  Weight: 74.8435 kg

DRUGS (2)
  1. YASMIN [Suspect]
     Indication: HAEMORRHAGE
     Dosage: 1 TABLET DAILEY PO
     Route: 048
  2. YASMIN [Suspect]

REACTIONS (4)
  - CHOLELITHIASIS [None]
  - GASTRIC INFECTION [None]
  - NAUSEA [None]
  - VOMITING [None]
